FAERS Safety Report 21190662 (Version 4)
Quarter: 2022Q4

REPORT INFORMATION
  Report Type: Report from Study
  Country: PL (occurrence: PL)
  Receive Date: 20220809
  Receipt Date: 20221230
  Transmission Date: 20230113
  Serious: Yes (Life-Threatening, Hospitalization, Other)
  Sender: FDA-Public Use
  Company Number: PL-CELLTRION HEALTHCARE HUNGARY KFT-2022PL012186

PATIENT
  Age: 70 Year
  Sex: Male
  Weight: 104 kg

DRUGS (5)
  1. RITUXIMAB [Suspect]
     Active Substance: RITUXIMAB
     Indication: Chronic lymphocytic leukaemia
     Dosage: 375 MG/M2
     Route: 042
     Dates: start: 20220512, end: 20220704
  2. RITUXIMAB [Suspect]
     Active Substance: RITUXIMAB
     Dosage: 500 MG/M2
     Route: 065
     Dates: start: 20220704
  3. BENDAMUSTINE [Suspect]
     Active Substance: BENDAMUSTINE
     Indication: Chronic lymphocytic leukaemia
     Dosage: 90 MG/M2
     Route: 042
     Dates: start: 20220512, end: 20220705
  4. BENDAMUSTINE [Suspect]
     Active Substance: BENDAMUSTINE
     Dosage: 50 MG/M2
     Route: 065
     Dates: start: 20220704, end: 20220705
  5. HASCOVIR [Concomitant]
     Indication: Antiviral treatment
     Dosage: UNK
     Dates: start: 20220620, end: 20220704

REACTIONS (2)
  - Anaemia [Recovered/Resolved]
  - COVID-19 [Recovered/Resolved]

NARRATIVE: CASE EVENT DATE: 20220620
